FAERS Safety Report 8333157-0 (Version None)
Quarter: 2012Q2

REPORT INFORMATION
  Report Type: 
  Country: None (occurrence: None)
  Receive Date: 20120503
  Receipt Date: 20120425
  Transmission Date: 20120825
  Serious: Yes (Other)
  Sender: FDA-Public Use
  Company Number: BR-PFIZER INC-2012103370

PATIENT
  Age: 78 Year
  Sex: Female

DRUGS (3)
  1. PROPRANOLOL [Concomitant]
  2. XALATAN [Suspect]
     Indication: GLAUCOMA
     Dosage: UNK
     Route: 047
     Dates: start: 20090101, end: 20100101
  3. LATANOPROST [Suspect]
     Indication: GLAUCOMA
     Route: 047

REACTIONS (5)
  - MEMORY IMPAIRMENT [None]
  - GAIT DISTURBANCE [None]
  - INFLUENZA [None]
  - GLAUCOMA [None]
  - CATARACT [None]
